FAERS Safety Report 25263626 (Version 4)
Quarter: 2025Q3

REPORT INFORMATION
  Report Type: Spontaneous
  Country: US (occurrence: US)
  Receive Date: 20250502
  Receipt Date: 20250715
  Transmission Date: 20251021
  Serious: No
  Sender: PFIZER
  Company Number: US-PFIZER INC-202500039229

PATIENT
  Age: 17 Year
  Sex: Male

DRUGS (2)
  1. GENOTROPIN [Suspect]
     Active Substance: SOMATROPIN
     Indication: Hypopituitarism
     Dosage: 2.0 MG EVERY OTHER DAY ALTERNATING WITH 2.2MG EVERY OTHER DAY, 7 DAYS/WEEK
     Route: 058
     Dates: start: 20250420
  2. GENOTROPIN [Suspect]
     Active Substance: SOMATROPIN
     Indication: Growth hormone deficiency
     Dosage: 2.0 MG EVERY OTHER DAY ALTERNATING WITH 2.2MG EVERY OTHER DAY, 7 DAYS/WEEK
     Route: 058
     Dates: start: 20250420

REACTIONS (6)
  - Injection site pain [Unknown]
  - Injection site haemorrhage [Unknown]
  - Product storage error [Unknown]
  - Poor quality product administered [Unknown]
  - Wrong technique in device usage process [Unknown]
  - Injection site discharge [Unknown]
